FAERS Safety Report 16409134 (Version 1)
Quarter: 2019Q2

REPORT INFORMATION
  Report Type: Spontaneous
  Country: DE (occurrence: DE)
  Receive Date: 20190610
  Receipt Date: 20190610
  Transmission Date: 20190711
  Serious: Yes (Other)
  Sender: FDA-Public Use
  Company Number: PHHY2019DE130354

PATIENT
  Sex: Male
  Weight: 108 kg

DRUGS (5)
  1. TELMISARTAN. [Suspect]
     Active Substance: TELMISARTAN
     Indication: PRODUCT USED FOR UNKNOWN INDICATION
     Dosage: 80 MG, UNK
     Route: 065
  2. SPIRONOLACTONE. [Suspect]
     Active Substance: SPIRONOLACTONE
     Indication: PRODUCT USED FOR UNKNOWN INDICATION
     Dosage: 50 MG, QD
     Route: 065
  3. TRANXILIUM [Concomitant]
     Active Substance: CLORAZEPATE DIPOTASSIUM
     Indication: PRODUCT USED FOR UNKNOWN INDICATION
     Dosage: 20 MG, BIW (EVERY 2 TO 3 DAYS)
     Route: 065
  4. METOPROLOL SANDOZ [Suspect]
     Active Substance: METOPROLOL
     Indication: PRODUCT USED FOR UNKNOWN INDICATION
     Dosage: 100 MG, BID
     Route: 065
  5. XARELTO [Suspect]
     Active Substance: RIVAROXABAN
     Indication: PRODUCT USED FOR UNKNOWN INDICATION
     Dosage: 20 MG, UNK
     Route: 065
     Dates: start: 20190219

REACTIONS (9)
  - Skin disorder [Unknown]
  - Nasopharyngitis [Unknown]
  - Fatigue [Unknown]
  - Malaise [Unknown]
  - Productive cough [Unknown]
  - Hyperhidrosis [Unknown]
  - Neoplasm malignant [Unknown]
  - Apathy [Unknown]
  - Cough [Unknown]

NARRATIVE: CASE EVENT DATE: 20190301
